FAERS Safety Report 5618831-9 (Version None)
Quarter: 2008Q1

REPORT INFORMATION
  Report Type: 
  Country: None (occurrence: None)
  Receive Date: 20080207
  Receipt Date: 20080128
  Transmission Date: 20080703
  Serious: Yes (Hospitalization, Other)
  Sender: FDA-Public Use
  Company Number: US-ELI_LILLY_AND_COMPANY-US200801005923

PATIENT
  Sex: Female

DRUGS (3)
  1. GEMZAR [Suspect]
     Indication: OVARIAN CANCER
     Dosage: UNK, OTHER
     Dates: start: 20070801
  2. CISPLATIN [Concomitant]
     Indication: OVARIAN CANCER
     Dosage: UNK, OTHER
     Dates: start: 20070801
  3. DEXAMETHASONE TAB [Concomitant]

REACTIONS (7)
  - BLOOD COUNT ABNORMAL [None]
  - BLOOD GLUCOSE ABNORMAL [None]
  - DEHYDRATION [None]
  - NASAL CONGESTION [None]
  - NAUSEA [None]
  - PAIN [None]
  - VOMITING [None]
